FAERS Safety Report 17550722 (Version 1)
Quarter: 2020Q1

REPORT INFORMATION
  Report Type: Spontaneous
  Country: US (occurrence: US)
  Receive Date: 20200317
  Receipt Date: 20200317
  Transmission Date: 20200409
  Serious: No
  Sender: FDA-Public Use
  Company Number: None

PATIENT
  Age: 28 Year
  Sex: Male

DRUGS (1)
  1. AFINITOR [Suspect]
     Active Substance: EVEROLIMUS
     Indication: RENAL CANCER
     Route: 048
     Dates: start: 20200316, end: 20200317

REACTIONS (3)
  - Product substitution issue [None]
  - Drug hypersensitivity [None]
  - Product formulation issue [None]

NARRATIVE: CASE EVENT DATE: 20200317
